FAERS Safety Report 9290773 (Version 1)
Quarter: 2013Q2

REPORT INFORMATION
  Report Type: Spontaneous
  Country: GB (occurrence: GB)
  Receive Date: 20130515
  Receipt Date: 20130515
  Transmission Date: 20140414
  Serious: Yes (Other)
  Sender: FDA-Public Use
  Company Number: GB-TEVA-404278ISR

PATIENT
  Age: 85 Year
  Sex: Male

DRUGS (8)
  1. TRIMETHOPRIM [Suspect]
     Indication: URINARY TRACT INFECTION
     Route: 048
     Dates: start: 20130416, end: 20130417
  2. PARACETAMOL [Concomitant]
  3. NYSTATIN [Concomitant]
  4. AMLODIPINE [Concomitant]
  5. ASPIRIN [Concomitant]
  6. BISOPROLOL [Concomitant]
  7. OMEPRAZOLE [Concomitant]
  8. VALSARTAN [Concomitant]

REACTIONS (2)
  - Erythema multiforme [Recovering/Resolving]
  - Mouth ulceration [Recovering/Resolving]
